FAERS Safety Report 4614723-2 (Version None)
Quarter: 2005Q2

REPORT INFORMATION
  Report Type: 
  Country: None (occurrence: None)
  Receive Date: 20050310
  Receipt Date: 20050124
  Transmission Date: 20051028
  Serious: Yes (Hospitalization)
  Sender: FDA-Public Use
  Company Number: A03200500251

PATIENT
  Age: 57 Year
  Sex: Female
  Weight: 62.0521 kg

DRUGS (9)
  1. ELOXATIN [Suspect]
     Indication: COLON CANCER
     Dosage: 147 MG Q2W - INTRAVENOUS NOS
     Route: 042
     Dates: start: 20050124, end: 20050124
  2. ELOXATIN [Suspect]
     Indication: COLON CANCER
     Dosage: 147 MG Q2W - INTRAVENOUS NOS
     Route: 042
     Dates: start: 20050124, end: 20050124
  3. PALONOSETRON HYDROCHLORIDE [Concomitant]
  4. DEXAMETHASONE [Concomitant]
  5. LEUCOVORIN CALCIUM [Concomitant]
  6. FLUOROURACIL [Concomitant]
  7. PROMETHAZINE HCL [Concomitant]
  8. LOPERAMIDE HYDROCHLORIDE [Concomitant]
  9. DIPHENOXYLATE HCL + ATROPINE SULFATE [Concomitant]

REACTIONS (8)
  - CHEST PAIN [None]
  - DYSPNOEA [None]
  - ERYTHEMA [None]
  - EYE OEDEMA [None]
  - HEART RATE DECREASED [None]
  - NAUSEA [None]
  - OXYGEN SATURATION DECREASED [None]
  - VOMITING [None]
